FAERS Safety Report 5637217-4 (Version None)
Quarter: 2008Q1

REPORT INFORMATION
  Report Type: 
  Country: None (occurrence: None)
  Receive Date: 20080225
  Receipt Date: 20080218
  Transmission Date: 20080703
  Serious: Yes (Death, Hospitalization, Other)
  Sender: FDA-Public Use
  Company Number: AU-AVENTIS-200715437EU

PATIENT
  Age: 74 Year
  Sex: Female

DRUGS (7)
  1. RILUTEK [Suspect]
     Route: 048
     Dates: start: 20071019, end: 20070101
  2. DIAMICRON [Concomitant]
     Dosage: DOSE: UNK
  3. DIABEX [Concomitant]
     Dosage: DOSE: UNK
  4. ZOCOR [Concomitant]
     Dosage: DOSE: UNK
  5. EFEXOR                             /01233802/ [Concomitant]
     Dosage: DOSE: UNK
  6. COVERSYL                           /00790701/ [Concomitant]
     Dosage: DOSE: UNK
  7. ASTRIX [Concomitant]
     Dosage: DOSE: UNK

REACTIONS (2)
  - CEREBROVASCULAR ACCIDENT [None]
  - DEATH [None]
